FAERS Safety Report 17061926 (Version 6)
Quarter: 2020Q1

REPORT INFORMATION
  Report Type: Spontaneous
  Country: GB (occurrence: GB)
  Receive Date: 20191121
  Receipt Date: 20200227
  Transmission Date: 20200409
  Serious: Yes (Hospitalization, Other)
  Sender: FDA-Public Use
  Company Number: GB-009507513-1911GBR006281

PATIENT
  Age: 34 Year
  Sex: Female

DRUGS (2)
  1. NEXPLANON [Suspect]
     Active Substance: ETONOGESTREL
     Dosage: 1 IMPLANT
     Route: 059
     Dates: start: 2016, end: 2019
  2. NEXPLANON [Suspect]
     Active Substance: ETONOGESTREL
     Dosage: 1 IMPLANT
     Route: 059
     Dates: start: 2019

REACTIONS (9)
  - Incorrect product administration duration [Unknown]
  - Mental disorder [Unknown]
  - Tonic clonic movements [Unknown]
  - Cerebrovascular accident [Unknown]
  - Pre-eclampsia [Unknown]
  - Unintended pregnancy [Not Recovered/Not Resolved]
  - Encephalitis autoimmune [Unknown]
  - Pregnancy with implant contraceptive [Not Recovered/Not Resolved]
  - Complication associated with device [Not Recovered/Not Resolved]

NARRATIVE: CASE EVENT DATE: 2019
